FAERS Safety Report 4357699-8 (Version None)
Quarter: 2004Q2

REPORT INFORMATION
  Report Type: 
  Country: None (occurrence: None)
  Receive Date: 20040513
  Receipt Date: 20040430
  Transmission Date: 20050107
  Serious: Yes (Death)
  Sender: FDA-Public Use
  Company Number: CA-ROCHE-367160

PATIENT
  Age: 54 Year
  Sex: Male

DRUGS (15)
  1. CELLCEPT [Suspect]
     Indication: DRUG USE FOR UNKNOWN INDICATION
     Route: 065
  2. ACTIVASE [Suspect]
     Dosage: FREQUENCY REPORTED AS ^FIRST DOSE^.
     Route: 042
  3. ACTONEL [Concomitant]
  4. ALFACALCIDOL [Concomitant]
  5. ATACAND [Concomitant]
  6. CALCIUM CARBONATE [Concomitant]
  7. COVERSYL [Concomitant]
  8. DIDROCAL [Concomitant]
  9. LASIX [Concomitant]
  10. LOPRESSOR [Concomitant]
  11. NORVASC [Concomitant]
  12. PREDNISOLONE [Concomitant]
  13. PROGRAF [Concomitant]
  14. SEPTRA [Concomitant]
  15. ZANTAC [Concomitant]

REACTIONS (7)
  - APHASIA [None]
  - CEREBRAL HAEMORRHAGE [None]
  - CONVULSION [None]
  - HEMIPARESIS [None]
  - HYPOTENSION [None]
  - SINUS TACHYCARDIA [None]
  - TACHYPNOEA [None]
